FAERS Safety Report 8451139-5 (Version None)
Quarter: 2012Q2

REPORT INFORMATION
  Report Type: 
  Country: None (occurrence: None)
  Receive Date: 20120613
  Receipt Date: 20120606
  Transmission Date: 20120825
  Serious: Yes (Death, Other)
  Sender: FDA-Public Use
  Company Number: BR-1192517

PATIENT
  Age: 86 Year
  Sex: Female

DRUGS (3)
  1. ALMEIDA [Concomitant]
  2. SINALAPRIL [Concomitant]
  3. TRAVATAN [Suspect]
     Indication: GLAUCOMA
     Dosage: (1 GTT QD OU OPHTHALMIC)
     Route: 047

REACTIONS (1)
  - GASTROINTESTINAL CARCINOMA [None]
